FAERS Safety Report 25152195 (Version 1)
Quarter: 2025Q2

REPORT INFORMATION
  Report Type: Spontaneous
  Country: RO (occurrence: RO)
  Receive Date: 20250402
  Receipt Date: 20250402
  Transmission Date: 20250716
  Serious: Yes (Other)
  Sender: MERCK SHARP AND DOHME
  Company Number: RO-009507513-2269164

PATIENT
  Age: 61 Year
  Sex: Male

DRUGS (1)
  1. PEMBROLIZUMAB [Suspect]
     Active Substance: PEMBROLIZUMAB
     Indication: Non-small cell lung cancer metastatic
     Dates: start: 201910

REACTIONS (11)
  - Nephrocalcinosis [Unknown]
  - Bone lesion [Unknown]
  - Spinal osteoarthritis [Unknown]
  - Osteoarthritis [Unknown]
  - Ischaemic stroke [Unknown]
  - Demyelination [Unknown]
  - Cerebral microangiopathy [Unknown]
  - Positron emission tomogram abnormal [Unknown]
  - Pulmonary mass [Unknown]
  - Therapy partial responder [Unknown]
  - Computerised tomogram abdomen abnormal [Unknown]

NARRATIVE: CASE EVENT DATE: 20191115
